FAERS Safety Report 18189936 (Version 3)
Quarter: 2022Q4

REPORT INFORMATION
  Report Type: Spontaneous
  Country: US (occurrence: US)
  Receive Date: 20200825
  Receipt Date: 20221013
  Transmission Date: 20230113
  Serious: No
  Sender: FDA-Public Use
  Company Number: US-CELLTRION INC.-2020US023407

PATIENT

DRUGS (7)
  1. INFLECTRA [Suspect]
     Active Substance: INFLIXIMAB-DYYB
     Indication: Osteoarthritis
     Dosage: 300 MG, ONCE
     Route: 042
     Dates: start: 202004
  2. INFLECTRA [Suspect]
     Active Substance: INFLIXIMAB-DYYB
     Dosage: 300 MG, ONCE
     Route: 042
  3. INFLECTRA [Suspect]
     Active Substance: INFLIXIMAB-DYYB
     Dosage: 500 MG, ONCE (EVERY 8 WEEKS)
     Route: 042
  4. INFLECTRA [Suspect]
     Active Substance: INFLIXIMAB-DYYB
     Dosage: FREQUENCY NOTED AT EVERY 16 WEEKS
  5. INFLECTRA [Suspect]
     Active Substance: INFLIXIMAB-DYYB
     Dosage: FREQUENCY LISTED EVERY 12 WEEKS
  6. INFLECTRA [Suspect]
     Active Substance: INFLIXIMAB-DYYB
     Dosage: (100 MG/ 20 ML); 500 MG, EVERY 8 WEEKS (QUANTITY: 5 X 100MG VIALS REFILLS: (BLANK)
     Route: 042
  7. INFLECTRA [Suspect]
     Active Substance: INFLIXIMAB-DYYB
     Dosage: 5 X 100 MG/20 ML : 500 MG IN NACL 0.9% INFUSION QUANTITY 5 X 100MG REFILLS: BLANK

REACTIONS (3)
  - Unevaluable event [Unknown]
  - Osteoarthritis [Unknown]
  - Off label use [Unknown]

NARRATIVE: CASE EVENT DATE: 20200401
